FAERS Safety Report 23059508 (Version 1)
Quarter: 2023Q4

REPORT INFORMATION
  Report Type: Report from Study
  Country: US (occurrence: US)
  Receive Date: 20231012
  Receipt Date: 20231012
  Transmission Date: 20240109
  Serious: Yes (Other)
  Sender: FDA-Public Use
  Company Number: US-JNJFOC-20231007401

PATIENT
  Age: 59 Year
  Sex: Male

DRUGS (1)
  1. BORTEZOMIB [Suspect]
     Active Substance: BORTEZOMIB
     Indication: Plasma cell myeloma
     Dosage: UNK
     Route: 065

REACTIONS (9)
  - Dry mouth [Unknown]
  - Muscle fatigue [Unknown]
  - Musculoskeletal stiffness [Unknown]
  - Muscle spasms [Unknown]
  - Rectal haemorrhage [Unknown]
  - Constipation [Unknown]
  - Dyspepsia [Unknown]
  - Hypoaesthesia [Unknown]
  - Paraesthesia [Unknown]
